FAERS Safety Report 16758894 (Version 8)
Quarter: 2020Q1

REPORT INFORMATION
  Report Type: Spontaneous
  Country: CA (occurrence: CA)
  Receive Date: 20190830
  Receipt Date: 20200227
  Transmission Date: 20200409
  Serious: Yes (Other)
  Sender: FDA-Public Use
  Company Number: CA-CELLTRION INC.-2019CA021674

PATIENT

DRUGS (15)
  1. INFLECTRA [Suspect]
     Active Substance: INFLIXIMAB-DYYB
     Dosage: 10 MG/KG, 0, 2, 6 THEN 8 WEEKS
     Route: 042
     Dates: start: 20190822
  2. CALCIUM [Concomitant]
     Active Substance: CALCIUM
     Dosage: UNK
     Route: 048
  3. VENOFER [Concomitant]
     Active Substance: IRON SUCROSE
     Dosage: UNK
     Route: 042
     Dates: start: 201811
  4. INFLECTRA [Suspect]
     Active Substance: INFLIXIMAB-DYYB
     Indication: COLITIS ULCERATIVE
     Dosage: 10 MG/KG (AT WEEK 0, 2, 6 THEN 8 WEEKS)
     Route: 042
     Dates: start: 20190506, end: 20191009
  5. MEZAVANT [Concomitant]
     Active Substance: MESALAMINE
     Dosage: UNK, 2X/DAY
     Route: 048
  6. VITAMIN D [COLECALCIFEROL] [Concomitant]
     Active Substance: CHOLECALCIFEROL
     Dosage: UNK
     Route: 048
  7. INFLECTRA [Suspect]
     Active Substance: INFLIXIMAB-DYYB
     Dosage: 10 MG/KG (0, 2, 6 THEN 8 WEEKS)
     Route: 042
     Dates: start: 20190521
  8. INFLECTRA [Suspect]
     Active Substance: INFLIXIMAB-DYYB
     Dosage: 10 MG/KG (0, 2, 6 THEN 8 WEEKS)
     Route: 042
     Dates: start: 20190618
  9. PREDNISONE. [Concomitant]
     Active Substance: PREDNISONE
     Dosage: UNK
     Route: 065
     Dates: start: 20190408
  10. INFLECTRA [Suspect]
     Active Substance: INFLIXIMAB-DYYB
     Dosage: 10 MG/KG, 0, 2, 6 THEN 8 WEEKS
     Route: 042
     Dates: start: 20191009
  11. INFLECTRA [Suspect]
     Active Substance: INFLIXIMAB-DYYB
     Dosage: 10 MG/KG, 0, 2, 6 THEN EVERY 8 WEEKS
     Route: 042
     Dates: start: 20191107
  12. PENTASA [Concomitant]
     Active Substance: MESALAMINE
     Dosage: UNK (HS)
     Route: 054
  13. INFLECTRA [Suspect]
     Active Substance: INFLIXIMAB-DYYB
     Dosage: 10 MG/KG, 0, 2, 6 THEN 8 WEEKS
     Route: 042
     Dates: start: 20190618
  14. INFLECTRA [Suspect]
     Active Substance: INFLIXIMAB-DYYB
     Dosage: 10 MG/KG, 0, 2, 6 THEN EVERY 8 WEEKS
     Route: 042
     Dates: start: 20191107
  15. INFLECTRA [Suspect]
     Active Substance: INFLIXIMAB-DYYB
     Dosage: 10 MG/KG, 0, 2, 6 THEN EVERY 8 WEEKS
     Route: 042
     Dates: start: 20191107

REACTIONS (15)
  - Dyspnoea [Recovered/Resolved]
  - Condition aggravated [Unknown]
  - Swelling face [Recovered/Resolved]
  - Ageusia [Recovered/Resolved]
  - Chills [Unknown]
  - Alopecia [Not Recovered/Not Resolved]
  - Off label use [Unknown]
  - Therapeutic product effect incomplete [Unknown]
  - Influenza like illness [Recovered/Resolved]
  - Inappropriate schedule of product administration [Unknown]
  - Uterine leiomyoma [Unknown]
  - Pyrexia [Recovered/Resolved]
  - Malaise [Unknown]
  - Weight increased [Not Recovered/Not Resolved]
  - Fatigue [Not Recovered/Not Resolved]

NARRATIVE: CASE EVENT DATE: 20190618
